FAERS Safety Report 4450011-5 (Version None)
Quarter: 2004Q3

REPORT INFORMATION
  Report Type: 
  Country: None (occurrence: None)
  Receive Date: 20040915
  Receipt Date: 20040904
  Transmission Date: 20050211
  Serious: Yes (Other)
  Sender: FDA-Public Use
  Company Number: PHBS2004IN11819

PATIENT
  Age: 6 Year
  Sex: Female

DRUGS (1)
  1. TEGRETOL-XR [Suspect]
     Indication: NEUROCYSTICERCOSIS
     Dosage: 200 MG, BID
     Route: 048

REACTIONS (4)
  - DIPLOPIA [None]
  - HAIR GROWTH ABNORMAL [None]
  - HYPERTROPHY BREAST [None]
  - VAGINAL HAEMORRHAGE [None]
